FAERS Safety Report 22172572 (Version 1)
Quarter: 2023Q2

REPORT INFORMATION
  Report Type: Spontaneous
  Country: CN (occurrence: CN)
  Receive Date: 20230404
  Receipt Date: 20230404
  Transmission Date: 20230721
  Serious: Yes (Other)
  Sender: FDA-Public Use
  Company Number: CN-PFIZER INC-PV202300060903

PATIENT
  Age: 82 Year
  Sex: Male
  Weight: 65 kg

DRUGS (2)
  1. VORICONAZOLE [Suspect]
     Active Substance: VORICONAZOLE
     Indication: Fungal infection
     Dosage: 0.2 G, 2X/DAY
     Route: 041
     Dates: start: 20230322, end: 20230322
  2. SODIUM CHLORIDE [Concomitant]
     Active Substance: SODIUM CHLORIDE
     Indication: Vehicle solution use
     Dosage: 100 ML, 2X/DAY
     Route: 041
     Dates: start: 20230322, end: 20230323

REACTIONS (3)
  - Hypersensitivity [Recovering/Resolving]
  - Flushing [Recovering/Resolving]
  - Respiratory rate increased [Recovering/Resolving]

NARRATIVE: CASE EVENT DATE: 20230322
